FAERS Safety Report 5224902-1 (Version None)
Quarter: 2007Q1

REPORT INFORMATION
  Report Type: 
  Country: None (occurrence: None)
  Receive Date: 20070126
  Receipt Date: 20070116
  Transmission Date: 20070707
  Serious: No
  Sender: FDA-Public Use
  Company Number: B0455216A

PATIENT
  Age: 51 Year
  Sex: Male

DRUGS (1)
  1. EPIVIR-HBV [Suspect]
     Indication: HEPATITIS B

REACTIONS (4)
  - DRUG RESISTANCE [None]
  - HEPATIC FAILURE [None]
  - INFECTION [None]
  - PATHOGEN RESISTANCE [None]
